FAERS Safety Report 6331623-0 (Version None)
Quarter: 2009Q3

REPORT INFORMATION
  Report Type: 
  Country: None (occurrence: None)
  Receive Date: 20090827
  Receipt Date: 20090821
  Transmission Date: 20100115
  Serious: Yes (Hospitalization, Other)
  Sender: FDA-Public Use
  Company Number: PHHY2009MX33542

PATIENT
  Age: 41 Year
  Sex: Female

DRUGS (1)
  1. EXFORGE [Suspect]
     Indication: HYPERTENSION
     Dosage: 1 TABLET/DAY
     Dates: start: 20090728, end: 20090807

REACTIONS (2)
  - HYPOTENSION [None]
  - HYSTERECTOMY [None]
